FAERS Safety Report 6164001-8 (Version None)
Quarter: 2009Q2

REPORT INFORMATION
  Report Type: 
  Country: None (occurrence: None)
  Receive Date: 20090422
  Receipt Date: 20090414
  Transmission Date: 20091009
  Serious: Yes (Death, Hospitalization)
  Sender: FDA-Public Use
  Company Number: CA-SANOFI-SYNTHELABO-A01200900817

PATIENT
  Sex: Male

DRUGS (4)
  1. AVASTIN [Concomitant]
  2. FOLINIC ACID [Concomitant]
  3. ELOXATIN [Suspect]
     Indication: COLON CANCER METASTATIC
  4. XELODA [Concomitant]
     Indication: COLON CANCER METASTATIC
     Route: 048

REACTIONS (2)
  - HEPATIC CIRRHOSIS [None]
  - LIVER DISORDER [None]
